FAERS Safety Report 4677741-4 (Version None)
Quarter: 2005Q2

REPORT INFORMATION
  Report Type: 
  Country: None (occurrence: None)
  Receive Date: 20050527
  Receipt Date: 20050506
  Transmission Date: 20051028
  Serious: Yes (Hospitalization)
  Sender: FDA-Public Use
  Company Number: 11093

PATIENT
  Age: 3 Year
  Sex: Female

DRUGS (9)
  1. METHOTREXATE [Suspect]
     Indication: JUVENILE ARTHRITIS
     Dosage: 12.5 MG WEEKLY
     Route: 058
     Dates: start: 20030624, end: 20030101
  2. METHOTREXATE [Suspect]
     Indication: JUVENILE ARTHRITIS
     Dosage: 12.5 MG WEEKLY
     Route: 058
     Dates: start: 20020205, end: 20030326
  3. METHOTREXATE [Suspect]
     Indication: JUVENILE ARTHRITIS
     Dosage: 12.5 MG WEEKLY
     Route: 058
     Dates: start: 20030101
  4. ETANERCEPT [Suspect]
     Indication: JUVENILE ARTHRITIS
     Dosage: 6.25 MG 2 /WK
     Route: 058
     Dates: start: 20031125
  5. PREDNISONE [Concomitant]
  6. PIROXICAM [Concomitant]
  7. ALIMEMAZINE TARTRATE [Concomitant]
  8. LACTULOSE [Concomitant]
  9. CHLORPHENIRAMINE MALEATE [Concomitant]

REACTIONS (6)
  - HEPATOMEGALY [None]
  - HISTIOCYTOSIS HAEMATOPHAGIC [None]
  - PANCYTOPENIA [None]
  - PHARYNGITIS [None]
  - PYREXIA [None]
  - VENTRICULAR HYPERTROPHY [None]
